FAERS Safety Report 16461238 (Version 3)
Quarter: 2019Q3

REPORT INFORMATION
  Report Type: Report from Study
  Country: US (occurrence: US)
  Receive Date: 20190620
  Receipt Date: 20190801
  Transmission Date: 20191004
  Serious: Yes (Death, Hospitalization)
  Sender: FDA-Public Use
  Company Number: US-ACTELION-A-NJ2019-189659

PATIENT
  Age: 52 Year
  Sex: Male
  Weight: 53.06 kg

DRUGS (3)
  1. TYVASO [Concomitant]
     Active Substance: TREPROSTINIL
  2. OPSUMIT [Suspect]
     Active Substance: MACITENTAN
     Indication: PULMONARY HYPERTENSION
     Dosage: 10 MG, QD
     Route: 048
  3. TADALAFIL. [Concomitant]
     Active Substance: TADALAFIL

REACTIONS (9)
  - Weight decreased [Unknown]
  - Cough [Unknown]
  - Dysphonia [Unknown]
  - Gastrointestinal disorder [Unknown]
  - Death [Fatal]
  - Pharyngitis streptococcal [Unknown]
  - Dehydration [Unknown]
  - Hospitalisation [Unknown]
  - Malnutrition [Unknown]

NARRATIVE: CASE EVENT DATE: 20190705
